FAERS Safety Report 24044648 (Version 1)
Quarter: 2024Q3

REPORT INFORMATION
  Report Type: Spontaneous
  Country: CN (occurrence: CN)
  Receive Date: 20240703
  Receipt Date: 20240703
  Transmission Date: 20241017
  Serious: Yes (Other)
  Sender: JOHNSON AND JOHNSON
  Company Number: CN-JNJFOC-20240700617

PATIENT
  Sex: Female
  Weight: 1.2 kg

DRUGS (1)
  1. CHILDRENS MOTRIN [Suspect]
     Active Substance: IBUPROFEN
     Indication: Ductus arteriosus premature closure
     Route: 048
     Dates: start: 20240520, end: 20240522

REACTIONS (3)
  - Oliguria [Recovered/Resolved]
  - Generalised oedema [Recovering/Resolving]
  - Off label use [Unknown]

NARRATIVE: CASE EVENT DATE: 20240520
